FAERS Safety Report 4905664-1 (Version None)
Quarter: 2006Q1

REPORT INFORMATION
  Report Type: 
  Country: None (occurrence: None)
  Receive Date: 20060203
  Receipt Date: 20060124
  Transmission Date: 20060701
  Serious: Yes (Hospitalization)
  Sender: FDA-Public Use
  Company Number: 2005BI017465

PATIENT
  Age: 60 Year
  Sex: Female

DRUGS (12)
  1. AVONEX LYOPHILIZED [Suspect]
     Indication: MULTIPLE SCLEROSIS
     Dosage: 30 U;QW;IM
     Route: 030
     Dates: start: 19980101, end: 20030801
  2. AVONEX LIQUID [Suspect]
     Indication: MULTIPLE SCLEROSIS
     Dosage: 30 UG;QW; IM
     Route: 030
     Dates: start: 20030801
  3. AVONEX LYOPHILIZED [Suspect]
     Indication: MULTIPLE SCLEROSIS
     Dosage: 15 UG;QW; IM
     Route: 030
  4. POTASSIUM CHLORIDE [Concomitant]
  5. NORVASC [Concomitant]
  6. NEXIUM [Concomitant]
  7. TEGRETOL [Concomitant]
  8. CELEXA [Concomitant]
  9. OXYBUTYNIN [Concomitant]
  10. TRIAMTERENE [Concomitant]
  11. SYNTHROID [Concomitant]
  12. AMANTADINE HCL [Concomitant]

REACTIONS (3)
  - HEART RATE INCREASED [None]
  - HYPERTENSION [None]
  - TREMOR [None]
